FAERS Safety Report 19581249 (Version 1)
Quarter: 2021Q3

REPORT INFORMATION
  Report Type: Spontaneous
  Country: US (occurrence: US)
  Receive Date: 20210719
  Receipt Date: 20210719
  Transmission Date: 20211014
  Serious: Yes (Life-Threatening, Disabling)
  Sender: FDA-Public Use
  Company Number: None

PATIENT
  Age: 41 Year
  Sex: Female
  Weight: 66.23 kg

DRUGS (9)
  1. VITAMINS [Concomitant]
     Active Substance: VITAMINS
  2. CYMBALTA [Suspect]
     Active Substance: DULOXETINE HYDROCHLORIDE
     Indication: DEPRESSION
     Dates: start: 20200201, end: 20210305
  3. AMITRIPTALINE [Concomitant]
     Active Substance: AMITRIPTYLINE
  4. LYRICA [Concomitant]
     Active Substance: PREGABALIN
  5. CLONZAPAM [Concomitant]
     Active Substance: CLONAZEPAM
  6. MEDICAL MARIJUANA [Concomitant]
     Active Substance: CANNABIS SATIVA SUBSP. INDICA TOP
  7. SYNTHROID [Concomitant]
     Active Substance: LEVOTHYROXINE SODIUM
  8. BACLOFEN. [Concomitant]
     Active Substance: BACLOFEN
  9. SERTRALINE [Concomitant]
     Active Substance: SERTRALINE HYDROCHLORIDE

REACTIONS (5)
  - Anxiety [None]
  - Amnesia [None]
  - Personality change [None]
  - Decreased appetite [None]
  - Hyperhidrosis [None]

NARRATIVE: CASE EVENT DATE: 20210201
